FAERS Safety Report 4944082-7 (Version None)
Quarter: 2006Q1

REPORT INFORMATION
  Report Type: 
  Country: None (occurrence: None)
  Receive Date: 20060310
  Receipt Date: 20060227
  Transmission Date: 20060701
  Serious: Yes (Other)
  Sender: FDA-Public Use
  Company Number: 2006-00747

PATIENT
  Age: 51 Year
  Sex: Male
  Weight: 81.6 kg

DRUGS (2)
  1. CARISOPRODOL [Suspect]
     Indication: PAIN
     Dosage: 2 TABLET, QID, ORAL
     Route: 048
     Dates: start: 19920501
  2. EXCEDRIN /USA/ (ACETYLSALICYLIC ACID, SALICYLAMIDE, PARACETAMOL) [Concomitant]
     Indication: INTERVERTEBRAL DISC PROTRUSION

REACTIONS (6)
  - BLINDNESS TRANSIENT [None]
  - CONVULSION [None]
  - DRUG DEPENDENCE [None]
  - GLOSSODYNIA [None]
  - INCORRECT DOSE ADMINISTERED [None]
  - TREATMENT NONCOMPLIANCE [None]
